FAERS Safety Report 7620985-X (Version None)
Quarter: 2011Q3

REPORT INFORMATION
  Report Type: 
  Country: None (occurrence: None)
  Receive Date: 20110719
  Receipt Date: 20110421
  Transmission Date: 20111222
  Serious: No
  Sender: FDA-Public Use
  Company Number: US-KINGPHARMUSA00001-K201100491

PATIENT
  Sex: Female

DRUGS (3)
  1. ZOCOR [Concomitant]
     Dosage: UNK
  2. LEVOXYL [Suspect]
     Indication: THYROID NEOPLASM
     Dosage: 50 MCG, QD
     Route: 048
  3. LEVOXYL [Suspect]
     Dosage: 100 MCG, QD
     Route: 048

REACTIONS (1)
  - PHARYNGEAL OEDEMA [None]
